FAERS Safety Report 12725172 (Version 1)
Quarter: 2016Q3

REPORT INFORMATION
  Report Type: Spontaneous
  Country: US (occurrence: US)
  Receive Date: 20160905
  Receipt Date: 20160905
  Transmission Date: 20161109
  Serious: Yes (Hospitalization, Disabling)
  Sender: FDA-Public Use
  Company Number: None

PATIENT
  Age: 56 Year
  Sex: Female
  Weight: 56.7 kg

DRUGS (2)
  1. CIPROFLOXACIN. [Suspect]
     Active Substance: CIPROFLOXACIN
     Indication: KIDNEY INFECTION
     Route: 048
     Dates: start: 20160801, end: 20160806
  2. ESSENTIAL OILS. [Concomitant]
     Active Substance: ESSENTIAL OILS

REACTIONS (10)
  - Pain [None]
  - Eye pain [None]
  - Decreased appetite [None]
  - Impaired driving ability [None]
  - Chest pain [None]
  - Photophobia [None]
  - Weight decreased [None]
  - Asthenia [None]
  - Impaired self-care [None]
  - Insomnia [None]

NARRATIVE: CASE EVENT DATE: 20160807
